FAERS Safety Report 8196924-2 (Version None)
Quarter: 2012Q1

REPORT INFORMATION
  Report Type: 
  Country: None (occurrence: None)
  Receive Date: 20120309
  Receipt Date: 20120306
  Transmission Date: 20120608
  Serious: Yes (Death)
  Sender: FDA-Public Use
  Company Number: TN-SANOFI-AVENTIS-2012SA015497

PATIENT
  Age: 67 Year
  Sex: Female

DRUGS (10)
  1. PERINDOPRIL ERBUMINE [Concomitant]
     Route: 048
     Dates: end: 20120217
  2. ASPEGIC 1000 [Concomitant]
     Route: 048
     Dates: end: 20120217
  3. BISOPROLOL FUMARATE [Concomitant]
     Route: 048
     Dates: end: 20120217
  4. ROSUVASTATIN CALCIUM [Concomitant]
     Route: 048
     Dates: end: 20120216
  5. PLAVIX [Suspect]
     Route: 048
     Dates: start: 20120101, end: 20120216
  6. GLUCOPHAGE [Concomitant]
     Route: 048
     Dates: end: 20120217
  7. FAMODINE [Concomitant]
     Route: 048
     Dates: end: 20120216
  8. MUCOLATOR [Concomitant]
     Route: 048
     Dates: end: 20120216
  9. PLAVIX [Suspect]
     Route: 048
     Dates: start: 20120101, end: 20120216
  10. GLYBURIDE [Concomitant]
     Route: 048
     Dates: end: 20120217

REACTIONS (1)
  - PLEURAL EFFUSION [None]
